FAERS Safety Report 5334690-6 (Version None)
Quarter: 2007Q2

REPORT INFORMATION
  Report Type: 
  Country: None (occurrence: None)
  Receive Date: 20070525
  Receipt Date: 20070507
  Transmission Date: 20071010
  Serious: Yes (Life-Threatening, Hospitalization)
  Sender: FDA-Public Use
  Company Number: TR-BAXTER-2007BH003973

PATIENT
  Age: 14 Year
  Sex: Female
  Weight: 57 kg

DRUGS (3)
  1. HEMOFIL M [Suspect]
     Indication: MUSCLE HAEMORRHAGE
     Route: 042
     Dates: start: 20070426, end: 20070426
  2. BERIATE P [Suspect]
     Indication: MUSCLE HAEMORRHAGE
     Route: 042
     Dates: start: 20070426, end: 20070426
  3. BERIATE P [Concomitant]

REACTIONS (2)
  - ANAPHYLACTOID REACTION [None]
  - DRUG INTERACTION [None]
